FAERS Safety Report 10277902 (Version 2)
Quarter: 2014Q3

REPORT INFORMATION
  Report Type: Spontaneous
  Country: IN (occurrence: IN)
  Receive Date: 20140704
  Receipt Date: 20140722
  Transmission Date: 20150326
  Serious: Yes (Disabling, Other)
  Sender: FDA-Public Use
  Company Number: IN-RANBAXY-2014RR-82977

PATIENT
  Age: 35 Year
  Sex: Female

DRUGS (5)
  1. QUETIAPINE [Suspect]
     Active Substance: QUETIAPINE
     Indication: MANIA
     Dosage: INCREASED UP TO 600 MG
     Route: 065
  2. OLANZAPINE. [Suspect]
     Active Substance: OLANZAPINE
     Indication: MANIA
     Dosage: UP TO 20 MG
     Route: 065
  3. CLONAZEPAM. [Suspect]
     Active Substance: CLONAZEPAM
     Indication: TARDIVE DYSKINESIA
     Dosage: UNK
  4. LITHIUM [Concomitant]
     Active Substance: LITHIUM CARBONATE
     Indication: BIPOLAR I DISORDER
     Dosage: INCREASED UP TO 900 MG, FROM THE SECOND TRIMESTER OF PREGNANCY
     Route: 065
  5. RISPERIDONE. [Suspect]
     Active Substance: RISPERIDONE
     Indication: MANIA
     Dosage: INCREASED UP TO 2MG, CUMULATIVE TOTAL DOSE OF 20MG
     Route: 065

REACTIONS (5)
  - Drug ineffective [Unknown]
  - Blood glucose abnormal [Unknown]
  - Tardive dyskinesia [Recovering/Resolving]
  - Sedation [Unknown]
  - Exposure during pregnancy [Unknown]
